FAERS Safety Report 4758837-5 (Version None)
Quarter: 2005Q3

REPORT INFORMATION
  Report Type: 
  Country: None (occurrence: None)
  Receive Date: 20050901
  Receipt Date: 20050716
  Transmission Date: 20060218
  Serious: No
  Sender: FDA-Public Use
  Company Number: 200512115JP

PATIENT
  Age: 56 Year
  Sex: Female
  Weight: 46 kg

DRUGS (8)
  1. ARAVA [Suspect]
     Indication: RHEUMATOID ARTHRITIS
     Route: 048
     Dates: start: 20050704, end: 20050715
  2. PREDNISOLONE [Concomitant]
     Indication: RHEUMATOID ARTHRITIS
     Route: 048
  3. TOYOFAROL [Concomitant]
     Indication: OSTEOPOROSIS
     Route: 048
  4. MARZULENE S [Concomitant]
     Indication: GASTRITIS
  5. FOLIAMIN [Concomitant]
     Indication: HEPATIC FUNCTION ABNORMAL
     Route: 048
     Dates: end: 20050721
  6. VOLTAREN SUPPOSITORIEN [Concomitant]
     Indication: RHEUMATOID ARTHRITIS
     Route: 054
  7. STRONG NEO-MINOPHAGEN C [Concomitant]
     Indication: HEPATIC FUNCTION ABNORMAL
     Route: 042
     Dates: start: 20050715
  8. QUESTRAN [Concomitant]
     Indication: HEPATIC FUNCTION ABNORMAL
     Route: 048

REACTIONS (5)
  - ALANINE AMINOTRANSFERASE INCREASED [None]
  - ASPARTATE AMINOTRANSFERASE INCREASED [None]
  - BLOOD ALKALINE PHOSPHATASE INCREASED [None]
  - GAMMA-GLUTAMYLTRANSFERASE INCREASED [None]
  - HEPATIC FUNCTION ABNORMAL [None]
